FAERS Safety Report 9562052 (Version 1)
Quarter: 2013Q3

REPORT INFORMATION
  Report Type: Spontaneous
  Country: CN (occurrence: CN)
  Receive Date: 20130927
  Receipt Date: 20130927
  Transmission Date: 20140515
  Serious: Yes (Other)
  Sender: FDA-Public Use
  Company Number: CN-PFIZER INC-2013275806

PATIENT
  Age: 14 Year
  Sex: Male
  Weight: 55.5 kg

DRUGS (1)
  1. MEDROL [Suspect]
     Indication: GLOMERULONEPHRITIS CHRONIC
     Dosage: 24 MG, 1X/DAY
     Route: 048
     Dates: start: 20120518, end: 20120801

REACTIONS (2)
  - Hepatic function abnormal [Recovering/Resolving]
  - Alanine aminotransferase increased [Recovering/Resolving]
